FAERS Safety Report 12683094 (Version 2)
Quarter: 2016Q4

REPORT INFORMATION
  Report Type: Spontaneous
  Country: JP (occurrence: JP)
  Receive Date: 20160825
  Receipt Date: 20161115
  Transmission Date: 20170207
  Serious: Yes (Other)
  Sender: FDA-Public Use
  Company Number: JP-TEVA-685274ISR

PATIENT
  Age: 83 Year
  Sex: Female

DRUGS (1)
  1. SODIUM RISEDRONATE HYDRATE [Suspect]
     Active Substance: RISEDRONATE SODIUM HEMI-PENTAHYDRATE
     Indication: OSTEOPOROSIS
     Route: 048

REACTIONS (7)
  - Pseudarthrosis [Recovered/Resolved]
  - Bone formation decreased [Recovered/Resolved]
  - Pain in extremity [Recovered/Resolved]
  - Atypical femur fracture [Recovered/Resolved]
  - Resorption bone increased [Recovered/Resolved]
  - Fracture nonunion [Recovered/Resolved]
  - Fall [Recovered/Resolved]
